FAERS Safety Report 17223970 (Version 2)
Quarter: 2024Q3

REPORT INFORMATION
  Report Type: Spontaneous
  Country: BG (occurrence: BG)
  Receive Date: 20200102
  Receipt Date: 20240916
  Transmission Date: 20241017
  Serious: Yes (Hospitalization, Other)
  Sender: MYLAN
  Company Number: BG-SA-2019SA219135

PATIENT
  Age: 60 Year
  Sex: Female

DRUGS (15)
  1. BISOPROLOL [Suspect]
     Active Substance: BISOPROLOL\BISOPROLOL FUMARATE
     Indication: Cardiac failure
     Dosage: 2.5 MILLIGRAM, QD
     Route: 048
     Dates: start: 201903
  2. AMLODIPINE [Suspect]
     Active Substance: AMLODIPINE BESYLATE
     Indication: Cardiotoxicity
     Dosage: 1 DOSAGE FORM, BID (2X1 TABLET)
     Route: 048
     Dates: start: 201903
  3. CYCLOPHOSPHAMIDE [Suspect]
     Active Substance: CYCLOPHOSPHAMIDE
     Indication: Myeloid leukaemia
     Dosage: UNK
     Route: 065
     Dates: start: 2010
  4. MYCOPHENOLATE MOFETIL [Suspect]
     Active Substance: MYCOPHENOLATE MOFETIL
     Indication: Myeloid leukaemia
     Dosage: 2 DOSAGE FORM, TID (3X2 TABLETS)
     Route: 048
  5. MYCOPHENOLATE MOFETIL [Suspect]
     Active Substance: MYCOPHENOLATE MOFETIL
     Dosage: 500 MILLIGRAM, TID
     Route: 048
  6. RAMIPRIL [Suspect]
     Active Substance: RAMIPRIL
     Indication: Cardiac failure
     Dosage: 5 MILLIGRAM, BID
     Route: 048
  7. RAMIPRIL [Suspect]
     Active Substance: RAMIPRIL
     Dosage: 1 DOSAGE FORM, BID (2X1 TABLET)
     Route: 048
     Dates: start: 201903
  8. URSODIOL [Concomitant]
     Active Substance: URSODIOL
     Indication: Cardiotoxicity
     Dosage: 250 MILLIGRAM, BID, 1 DF, BID (2X1 TABLET)
     Route: 048
     Dates: start: 201903
  9. ACYCLOVIR [Concomitant]
     Active Substance: ACYCLOVIR
     Indication: Cardiotoxicity
     Dosage: 400 MILLIGRAM, TID
     Route: 048
  10. ACYCLOVIR [Concomitant]
     Active Substance: ACYCLOVIR
     Dosage: 400 MILLIGRAM, Q8H (400 MG, TID)
     Route: 048
     Dates: start: 201903
  11. PANTOPRAZOLE [Concomitant]
     Active Substance: PANTOPRAZOLE
     Indication: Cardiotoxicity
     Dosage: 20 MILLIGRAM, BID
     Route: 065
  12. PANTOPRAZOLE [Concomitant]
     Active Substance: PANTOPRAZOLE
     Dosage: 1 DOSAGE FORM, BID (2X1 TABLET)
     Route: 048
     Dates: start: 201903
  13. TRIMETAZIDINE [Concomitant]
     Active Substance: TRIMETAZIDINE
     Indication: Cardiotoxicity
     Dosage: 1 DOSAGE FORM, BID (2X1 TABLET)
     Route: 048
     Dates: start: 201903
  14. METHYLPREDNISOLONE [Concomitant]
     Active Substance: METHYLPREDNISOLONE
     Indication: Cardiotoxicity
     Dosage: 16 MILLIGRAM, QD
     Route: 048
     Dates: start: 201903
  15. SPIRONOLACTONE [Concomitant]
     Active Substance: SPIRONOLACTONE
     Indication: Cardiotoxicity
     Dosage: 1 DOSAGE FORM, BID (2X1 TABLET)
     Dates: start: 201903

REACTIONS (14)
  - Rales [Recovering/Resolving]
  - Joint swelling [Recovering/Resolving]
  - Tricuspid valve incompetence [Recovered/Resolved]
  - Fatigue [Recovering/Resolving]
  - Dyspnoea [Recovered/Resolved]
  - General physical health deterioration [Recovering/Resolving]
  - Mitral valve incompetence [Recovering/Resolving]
  - Cardiotoxicity [Recovering/Resolving]
  - Heart failure with reduced ejection fraction [Recovering/Resolving]
  - Pulmonary hypertension [Recovering/Resolving]
  - Peripheral swelling [Recovering/Resolving]
  - Drug ineffective [Unknown]
  - Off label use [Unknown]
  - Intentional product misuse [Unknown]

NARRATIVE: CASE EVENT DATE: 20190301
